FAERS Safety Report 5859203-1 (Version None)
Quarter: 2008Q4

REPORT INFORMATION
  Report Type: 
  Country: None (occurrence: None)
  Receive Date: 20080827
  Receipt Date: 20080821
  Transmission Date: 20090506
  Serious: Yes (Other)
  Sender: FDA-Public Use
  Company Number: US-BAYER-200831657NA

PATIENT
  Sex: Female

DRUGS (2)
  1. CLIMARA [Suspect]
     Indication: DRUG USE FOR UNKNOWN INDICATION
     Route: 062
  2. CLIMARA [Suspect]
     Indication: DRUG USE FOR UNKNOWN INDICATION
     Route: 062

REACTIONS (2)
  - RASH [None]
  - THERAPEUTIC EMBOLISATION [None]
